FAERS Safety Report 13080416 (Version 2)
Quarter: 2017Q1

REPORT INFORMATION
  Report Type: Spontaneous
  Country: AR (occurrence: AR)
  Receive Date: 20170103
  Receipt Date: 20170113
  Transmission Date: 20170428
  Serious: Yes (Other)
  Sender: FDA-Public Use
  Company Number: AR-GLAXOSMITHKLINE-AR2016GSK131719

PATIENT
  Age: 63 Year
  Sex: Female

DRUGS (4)
  1. PRIDINOL [Suspect]
     Active Substance: PRIDINOL
     Indication: PRODUCT USED FOR UNKNOWN INDICATION
  2. VOLTAREN D [Suspect]
     Active Substance: DICLOFENAC
     Indication: BACK PAIN
     Dosage: 25 MG, QD
  3. VOLTAREN D [Suspect]
     Active Substance: DICLOFENAC
     Indication: MUSCLE CONTRACTURE
     Dosage: 75 MG, UNK
  4. VOLTAREN [Suspect]
     Active Substance: DICLOFENAC SODIUM
     Indication: MUSCLE CONTRACTURE

REACTIONS (10)
  - Blindness [Unknown]
  - Spinal pain [Unknown]
  - Vertigo [Unknown]
  - Neck pain [Not Recovered/Not Resolved]
  - Anger [Unknown]
  - Malaise [Unknown]
  - Pain [Unknown]
  - Drug ineffective [Unknown]
  - Hypersensitivity [Unknown]
  - Memory impairment [Unknown]

NARRATIVE: CASE EVENT DATE: 201610
